FAERS Safety Report 11240359 (Version 1)
Quarter: 2015Q3

REPORT INFORMATION
  Report Type: Spontaneous
  Country: US (occurrence: None)
  Receive Date: 20150701
  Receipt Date: 20150701
  Transmission Date: 20151125
  Serious: Yes (Other)
  Sender: FDA-Public Use
  Company Number: None

PATIENT
  Age: 52 Year
  Sex: Male

DRUGS (6)
  1. PERCOCET [Concomitant]
     Active Substance: ACETAMINOPHEN\OXYCODONE HYDROCHLORIDE
  2. MULTIVITAMIN [Concomitant]
     Active Substance: VITAMINS
  3. NORVASC [Concomitant]
     Active Substance: AMLODIPINE BESYLATE
  4. INLYTA [Suspect]
     Active Substance: AXITINIB
     Indication: RENAL CANCER
     Dosage: 2 TABS IN AM AND 1 TAB IN PM
     Route: 048
     Dates: start: 201505
  5. ATENOLOL. [Concomitant]
     Active Substance: ATENOLOL
  6. XANAX [Concomitant]
     Active Substance: ALPRAZOLAM

REACTIONS (2)
  - Blood pressure diastolic increased [None]
  - Hypertension [None]
